FAERS Safety Report 9769093 (Version 5)
Quarter: 2018Q2

REPORT INFORMATION
  Report Type: Spontaneous
  Country: US (occurrence: US)
  Receive Date: 20131218
  Receipt Date: 20180530
  Transmission Date: 20180711
  Serious: Yes (Hospitalization, Disabling, Other)
  Sender: FDA-Public Use
  Company Number: US-009507513-1312USA005238

PATIENT
  Sex: Female
  Weight: 58.96 kg

DRUGS (4)
  1. FOSAMAX [Suspect]
     Active Substance: ALENDRONATE SODIUM
     Indication: OSTEOPOROSIS
     Dosage: 10 MG, QD
     Route: 048
     Dates: start: 199604, end: 200110
  2. CALCIUM (UNSPECIFIED) (+) VITAMIN D (UNSPECIFIED) [Concomitant]
     Active Substance: CALCIUM CARBONATE\VITAMIN D
     Dosage: UNK
     Route: 048
     Dates: start: 1996
  3. FOSAMAX [Suspect]
     Active Substance: ALENDRONATE SODIUM
     Dosage: 70 MG, QW
     Route: 048
     Dates: start: 200110, end: 20080504
  4. ALENDRONATE SODIUM. [Suspect]
     Active Substance: ALENDRONATE SODIUM
     Indication: OSTEOPOROSIS
     Dosage: 70 MG, QW
     Route: 048
     Dates: start: 20080504, end: 201005

REACTIONS (22)
  - Femur fracture [Unknown]
  - Femur fracture [Recovering/Resolving]
  - Blood cholesterol increased [Unknown]
  - Vertigo [Unknown]
  - Osteoarthritis [Unknown]
  - Anxiety [Not Recovered/Not Resolved]
  - Tooth extraction [Unknown]
  - Fibromyalgia [Unknown]
  - Dental discomfort [Unknown]
  - Skin ulcer [Recovering/Resolving]
  - Fall [Unknown]
  - Fall [Unknown]
  - Hypothyroidism [Unknown]
  - Osteoporosis [Unknown]
  - Hypertension [Unknown]
  - Lumbar radiculopathy [Unknown]
  - Osteoporosis [Unknown]
  - Tooth disorder [Unknown]
  - Depression [Not Recovered/Not Resolved]
  - Denture wearer [Unknown]
  - Lichen planus [Unknown]
  - Periodontal operation [Unknown]

NARRATIVE: CASE EVENT DATE: 199604
